FAERS Safety Report 8960315 (Version 1)
Quarter: 2012Q4

REPORT INFORMATION
  Report Type: 
  Country: US (occurrence: US)
  Receive Date: 20121212
  Receipt Date: 20121212
  Transmission Date: 20130627
  Serious: Yes (Hospitalization)
  Sender: FDA-Public Use
  Company Number: US-ELI_LILLY_AND_COMPANY-US201212001143

PATIENT
  Sex: Female

DRUGS (4)
  1. HUMATROPE [Suspect]
     Indication: GROWTH HORMONE DEFICIENCY
     Dosage: 0.4 mg, qd
     Route: 065
     Dates: start: 200909
  2. HUMATROPE [Suspect]
     Dosage: 0.4 mg, qd
     Route: 065
     Dates: start: 200909
  3. HUMATROPE [Suspect]
     Dosage: 0.4 mg, qd
     Route: 065
     Dates: start: 200909
  4. HUMATROPE [Suspect]
     Dosage: 0.5 mg, qd
     Route: 065

REACTIONS (2)
  - Thyroid disorder [Recovered/Resolved]
  - Hypothyroidism [Recovered/Resolved]
